FAERS Safety Report 19907526 (Version 2)
Quarter: 2022Q1

REPORT INFORMATION
  Report Type: Spontaneous
  Country: DE (occurrence: DE)
  Receive Date: 20211001
  Receipt Date: 20220302
  Transmission Date: 20220423
  Serious: Yes (Life-Threatening, Other)
  Sender: FDA-Public Use
  Company Number: DE-BAYER-2021A218363

PATIENT
  Sex: Male

DRUGS (2)
  1. VITRAKVI [Suspect]
     Active Substance: LAROTRECTINIB
     Indication: Hypopharyngeal cancer
     Dosage: 20 MG, BID
     Dates: start: 202010, end: 202105
  2. VITRAKVI [Suspect]
     Active Substance: LAROTRECTINIB
     Indication: Hypopharyngeal cancer
     Dosage: 20 MG/ AT A BODY SURFACE OF 0.47 QM
     Dates: start: 202106

REACTIONS (3)
  - Tracheal obstruction [Recovered/Resolved]
  - Epilepsy [Unknown]
  - Hypopharyngeal cancer [Unknown]

NARRATIVE: CASE EVENT DATE: 20210301
